FAERS Safety Report 9596370 (Version 4)
Quarter: 2015Q1

REPORT INFORMATION
  Report Type: Report from Study
  Country: JP (occurrence: JP)
  Receive Date: 20131004
  Receipt Date: 20150116
  Transmission Date: 20150721
  Serious: Yes (Hospitalization)
  Sender: FDA-Public Use
  Company Number: JP-BAYER-2013-117679

PATIENT
  Age: 62 Year
  Sex: Male
  Weight: 62 kg

DRUGS (5)
  1. STIVARGA [Suspect]
     Active Substance: REGORAFENIB
     Indication: RECTAL CANCER
     Dosage: ONE CYCLE IS STIVARGA 160 MG/DAY ON FOR 3 WEEKS AND OFF FOR 1 WEEK.
     Route: 048
     Dates: start: 20130717, end: 20130730
  2. FEBUXOSTAT. [Concomitant]
     Active Substance: FEBUXOSTAT
     Dosage: DAILY DOSE 40 MG
     Route: 048
  3. STIVARGA [Suspect]
     Active Substance: REGORAFENIB
     Indication: RECTAL CANCER
     Dosage: ONE CYCLE IS STIVARGA 120 MG/DAY ON FOR 3 WEEKS AND OFF FOR 1 WEEK.
     Route: 048
     Dates: start: 20130731, end: 20130803
  4. HIRUDOID [Concomitant]
     Active Substance: GLYCOSAMINOGLYCANS
     Indication: PIGMENTATION DISORDER
  5. HIRUDOID [Concomitant]
     Active Substance: GLYCOSAMINOGLYCANS
     Indication: DRUG TOXICITY PROPHYLAXIS
     Dosage: DAILY DOSE .3 %
     Route: 061
     Dates: start: 20130716, end: 20130814

REACTIONS (18)
  - Blood creatinine increased [Recovering/Resolving]
  - White blood cell count increased [Recovering/Resolving]
  - Pain [Not Recovered/Not Resolved]
  - Oedema peripheral [Recovering/Resolving]
  - Lung infection [Recovering/Resolving]
  - Dyspnoea [Recovered/Resolved]
  - Pneumonitis [Recovering/Resolving]
  - Malaise [Not Recovered/Not Resolved]
  - Platelet count decreased [Recovering/Resolving]
  - Skin ulcer [Not Recovered/Not Resolved]
  - Aspartate aminotransferase increased [Recovered/Resolved]
  - Blood creatine phosphokinase increased [Recovering/Resolving]
  - Palmar-plantar erythrodysaesthesia syndrome [Not Recovered/Not Resolved]
  - Pigmentation disorder [Recovering/Resolving]
  - Decreased appetite [Recovering/Resolving]
  - Proctalgia [Not Recovered/Not Resolved]
  - Dysphonia [Recovered/Resolved]
  - Neutrophil count increased [Recovering/Resolving]

NARRATIVE: CASE EVENT DATE: 20130723
